FAERS Safety Report 9081049 (Version 1)
Quarter: 2013Q1

REPORT INFORMATION
  Report Type: Report from Study
  Country: US (occurrence: US)
  Receive Date: 20130130
  Receipt Date: 20130130
  Transmission Date: 20140127
  Serious: No
  Sender: FDA-Public Use
  Company Number: US-ABBOTT-12P-163-0977858-00

PATIENT
  Age: 31 Year
  Sex: Female

DRUGS (4)
  1. HUMIRA [Suspect]
     Indication: CROHN^S DISEASE
     Dates: start: 20120813, end: 20120813
  2. HUMIRA [Suspect]
     Dates: start: 20120827
  3. EFFEXOR [Concomitant]
     Indication: PRODUCT USED FOR UNKNOWN INDICATION
  4. LORAZEPAM [Concomitant]

REACTIONS (3)
  - Nasopharyngitis [Not Recovered/Not Resolved]
  - Throat irritation [Not Recovered/Not Resolved]
  - Malaise [Not Recovered/Not Resolved]
